FAERS Safety Report 7000642-3 (Version None)
Quarter: 2010Q3

REPORT INFORMATION
  Report Type: 
  Country: None (occurrence: None)
  Receive Date: 20100920
  Receipt Date: 20100910
  Transmission Date: 20110219
  Serious: Yes (Other)
  Sender: FDA-Public Use
  Company Number: US-PERRIGO-10US012928

PATIENT
  Sex: Female
  Weight: 68.027 kg

DRUGS (8)
  1. POLYETHYLENE GLYCOL 3350 17G 306 [Suspect]
     Indication: CONSTIPATION
     Dosage: 17 G, QD
     Route: 048
     Dates: start: 20100601, end: 20100906
  2. POLYETHYLENE GLYCOL 3350 17G 306 [Suspect]
     Dosage: 17 G, QD
     Route: 048
     Dates: start: 20100908, end: 20100908
  3. LEVOTHYROXINE [Concomitant]
     Indication: HYPOTHYROIDISM
     Dosage: .137 MG, QD
     Route: 048
     Dates: start: 19850101
  4. ASPIRIN [Concomitant]
     Indication: PROPHYLAXIS
     Dosage: 81 MG, QD
     Route: 048
     Dates: start: 19850101
  5. TRAMADOL [Concomitant]
     Indication: TREMOR
     Dosage: 100 MG, QD
     Route: 048
     Dates: start: 19980101
  6. RENA-VITE [Concomitant]
     Indication: SUPPLEMENTATION THERAPY
     Dosage: ONE TABLET DAILY
     Route: 048
     Dates: start: 20100401
  7. DIOVAN [Concomitant]
     Indication: HYPERTENSION
     Dosage: 80 MG, QD
     Route: 048
     Dates: start: 20100401
  8. INSULIN [Concomitant]
     Indication: DIABETES MELLITUS
     Dosage: UNK
     Route: 058
     Dates: start: 19850101

REACTIONS (9)
  - ABDOMINAL DISTENSION [None]
  - CONDITION AGGRAVATED [None]
  - DRUG EFFECT DECREASED [None]
  - DYSPNOEA [None]
  - FAECALOMA [None]
  - HYPERSENSITIVITY [None]
  - INCORRECT DRUG ADMINISTRATION DURATION [None]
  - OESOPHAGEAL DISORDER [None]
  - PRURITUS [None]
